FAERS Safety Report 15144762 (Version 11)
Quarter: 2018Q4

REPORT INFORMATION
  Report Type: Spontaneous
  Country: IT (occurrence: IT)
  Receive Date: 20180713
  Receipt Date: 20181010
  Transmission Date: 20190204
  Serious: Yes (Hospitalization, Other)
  Sender: FDA-Public Use
  Company Number: IT-PFIZER INC-2018274246

PATIENT
  Age: 72 Year
  Sex: Female

DRUGS (2)
  1. TRIATEC (RAMIPRIL) [Suspect]
     Active Substance: RAMIPRIL
     Dosage: 1/2 TABLET
     Route: 048
     Dates: start: 20180601, end: 20180601
  2. ATENOLOL. [Suspect]
     Active Substance: ATENOLOL
     Dosage: 1/2 TABLET
     Route: 048
     Dates: start: 20180601, end: 20180601

REACTIONS (4)
  - Hypotension [Recovered/Resolved]
  - Hypotelorism of orbit [Unknown]
  - Accidental exposure to product [Recovered/Resolved]
  - Bradycardia [Recovered/Resolved]

NARRATIVE: CASE EVENT DATE: 20180601
